FAERS Safety Report 9435110 (Version 1)
Quarter: 2013Q3

REPORT INFORMATION
  Report Type: Spontaneous
  Country: BR (occurrence: BR)
  Receive Date: 20130801
  Receipt Date: 20130801
  Transmission Date: 20140515
  Serious: Yes (Other)
  Sender: FDA-Public Use
  Company Number: CHNY2013BR001605

PATIENT
  Age: 55 Year
  Sex: Female
  Weight: 62 kg

DRUGS (3)
  1. CIBALENA [Suspect]
     Dosage: UNK, UNK
  2. PEGASYS [Suspect]
     Indication: HEPATITIS C
     Dosage: 0.180 MG, QW
     Dates: start: 20130719
  3. RIBAVIRINA [Suspect]
     Dosage: 2 DF, BID
     Dates: start: 20130719

REACTIONS (5)
  - Depression [Unknown]
  - Food allergy [Unknown]
  - Headache [Unknown]
  - Postmenopausal haemorrhage [Unknown]
  - Drug hypersensitivity [Unknown]
